FAERS Safety Report 5889804-6 (Version None)
Quarter: 2008Q3

REPORT INFORMATION
  Report Type: 
  Country: None (occurrence: None)
  Receive Date: 20080919
  Receipt Date: 20080904
  Transmission Date: 20090109
  Serious: Yes (Other)
  Sender: FDA-Public Use
  Company Number: US-GENENTECH-267072

PATIENT
  Age: 50 Year
  Sex: Male

DRUGS (14)
  1. XOLAIR [Suspect]
     Indication: ASTHMA
     Dosage: 300 MG, 1/MONTH
     Route: 058
     Dates: start: 20080411, end: 20080703
  2. XOPENEX [Concomitant]
     Indication: DRUG USE FOR UNKNOWN INDICATION
  3. ASMANEX TWISTHALER [Concomitant]
     Indication: DRUG USE FOR UNKNOWN INDICATION
  4. ACCOLATE [Concomitant]
     Indication: DRUG USE FOR UNKNOWN INDICATION
  5. PULMICORT-100 [Concomitant]
     Indication: DRUG USE FOR UNKNOWN INDICATION
  6. IPRATROPIUM BROMIDE [Concomitant]
     Indication: DRUG USE FOR UNKNOWN INDICATION
  7. FEXOFENADINE [Concomitant]
     Indication: DRUG USE FOR UNKNOWN INDICATION
  8. NEXIUM [Concomitant]
     Indication: DRUG USE FOR UNKNOWN INDICATION
  9. TRAZODONE HCL [Concomitant]
     Indication: DRUG USE FOR UNKNOWN INDICATION
  10. EPIPEN [Concomitant]
     Indication: DRUG USE FOR UNKNOWN INDICATION
  11. SALINEX [Concomitant]
     Indication: DRUG USE FOR UNKNOWN INDICATION
  12. IBUPROFEN [Concomitant]
     Indication: DRUG USE FOR UNKNOWN INDICATION
  13. VITAMIN TAB [Concomitant]
     Indication: DRUG USE FOR UNKNOWN INDICATION
  14. QUININE SULFATE [Concomitant]
     Indication: DRUG USE FOR UNKNOWN INDICATION

REACTIONS (2)
  - INFECTIOUS MONONUCLEOSIS [None]
  - INFLUENZA LIKE ILLNESS [None]
